FAERS Safety Report 8105688-X (Version None)
Quarter: 2012Q1

REPORT INFORMATION
  Report Type: 
  Country: None (occurrence: None)
  Receive Date: 20120201
  Receipt Date: 20120120
  Transmission Date: 20120608
  Serious: Yes (Other)
  Sender: FDA-Public Use
  Company Number: SE-ELI_LILLY_AND_COMPANY-SE201201007676

PATIENT
  Age: 72 Year
  Sex: Male

DRUGS (13)
  1. ASPIRIN [Concomitant]
     Dosage: 75 MG, UNKNOWN
  2. HUMALOG MIX 50/50 [Suspect]
     Dosage: UNK
     Dates: start: 20110314
  3. VENTILASTIN NOVOLIZER [Concomitant]
     Dosage: 100 MIKROGRAM/DOS
     Route: 055
  4. AMLODIPINE [Concomitant]
     Dosage: 5 MG, UNKNOWN
  5. XALATAN [Concomitant]
     Dosage: UNK
     Route: 047
  6. METFORMIN HCL [Concomitant]
     Dosage: UNK
  7. AZOPT [Concomitant]
     Dosage: UNK
     Route: 047
  8. NOVOLOG [Concomitant]
     Dosage: UNK
  9. BISOPROLOL FUMARATE [Concomitant]
     Dosage: 10 MG, UNKNOWN
  10. BUMETANIDE [Concomitant]
     Dosage: 1 MG, UNKNOWN
  11. VOLTAREN [Concomitant]
     Dosage: UNK
     Route: 054
  12. LITHIONIT [Concomitant]
     Dosage: UNK
  13. SIMVASTATIN [Concomitant]
     Dosage: 40 MG, UNKNOWN

REACTIONS (2)
  - LIP SWELLING [None]
  - TONGUE OEDEMA [None]
